FAERS Safety Report 23715820 (Version 1)
Quarter: 2024Q2

REPORT INFORMATION
  Report Type: Spontaneous
  Country: IN (occurrence: IN)
  Receive Date: 20240408
  Receipt Date: 20240408
  Transmission Date: 20240716
  Serious: No
  Sender: FDA-Public Use
  Company Number: None

PATIENT
  Age: 45 Year
  Sex: Female
  Weight: 50 kg

DRUGS (9)
  1. IBUPROFEN [Suspect]
     Active Substance: IBUPROFEN
     Indication: Product used for unknown indication
     Dosage: UNK
     Route: 065
  2. DAPSONE [Suspect]
     Active Substance: DAPSONE
     Indication: Product used for unknown indication
     Dosage: UNK
     Route: 065
  3. METRONIDAZOLE [Suspect]
     Active Substance: METRONIDAZOLE
     Indication: Product used for unknown indication
     Dosage: UNK
     Route: 065
  4. NIMESULIDE [Suspect]
     Active Substance: NIMESULIDE
     Indication: Pyrexia
     Dosage: UNK
     Route: 065
  5. NIMESULIDE [Suspect]
     Active Substance: NIMESULIDE
     Indication: Skin lesion
  6. QUININE [Suspect]
     Active Substance: QUININE
     Indication: Product used for unknown indication
     Dosage: UNK
     Route: 065
  7. TRIMETHOPRIM [Suspect]
     Active Substance: TRIMETHOPRIM
     Indication: Product used for unknown indication
     Dosage: UNK
     Route: 065
  8. PREDNISOLONE [Concomitant]
     Active Substance: PREDNISOLONE
     Indication: Seizure
     Dosage: 10 MILLIGRAM, OD
     Route: 065
  9. VALPROATE SODIUM [Concomitant]
     Active Substance: VALPROATE SODIUM
     Indication: Seizure
     Dosage: 200 MILLIGRAM, OD
     Route: 065

REACTIONS (1)
  - Drug hypersensitivity [Unknown]
